FAERS Safety Report 6003863-1 (Version None)
Quarter: 2008Q4

REPORT INFORMATION
  Report Type: 
  Country: None (occurrence: None)
  Receive Date: 20081216
  Receipt Date: 20081205
  Transmission Date: 20090506
  Serious: Yes (Other)
  Sender: FDA-Public Use
  Company Number: PHEH2008US10861

PATIENT
  Sex: Female

DRUGS (1)
  1. RECLAST [Suspect]

REACTIONS (8)
  - ANOREXIA [None]
  - FATIGUE [None]
  - HAEMORRHAGE [None]
  - HEADACHE [None]
  - HYPERVENTILATION [None]
  - RED BLOOD CELL COUNT DECREASED [None]
  - RHINORRHOEA [None]
  - WEIGHT DECREASED [None]
